FAERS Safety Report 12679511 (Version 2)
Quarter: 2016Q3

REPORT INFORMATION
  Report Type: Spontaneous
  Country: US (occurrence: US)
  Receive Date: 20160824
  Receipt Date: 20160830
  Transmission Date: 20161109
  Serious: No
  Sender: FDA-Public Use
  Company Number: US-009507513-1608USA011970

PATIENT
  Age: 52 Year
  Sex: Female

DRUGS (1)
  1. SOLARCAINE COOL ALOE [Suspect]
     Active Substance: LIDOCAINE HYDROCHLORIDE
     Indication: FEELING HOT
     Dosage: 1 DF, ONCE
     Route: 061
     Dates: start: 20160707, end: 20160707

REACTIONS (5)
  - Dermatitis contact [Recovered/Resolved]
  - Skin burning sensation [Recovered/Resolved]
  - Product use issue [Unknown]
  - Erythema [Recovered/Resolved]
  - Rash macular [Recovered/Resolved]

NARRATIVE: CASE EVENT DATE: 20160707
